FAERS Safety Report 4895714-3 (Version None)
Quarter: 2006Q1

REPORT INFORMATION
  Report Type: 
  Country: None (occurrence: None)
  Receive Date: 20060125
  Receipt Date: 20060110
  Transmission Date: 20060701
  Serious: Yes (Other)
  Sender: FDA-Public Use
  Company Number: C06-002

PATIENT
  Sex: Male
  Weight: 90.7194 kg

DRUGS (3)
  1. QUINARETIC [Suspect]
     Indication: HYPERTENSION
     Dosage: ONE TABLET DAILY, 047
  2. ZOCOR [Suspect]
     Indication: BLOOD CHOLESTEROL INCREASED
     Dosage: 40 MG DAILY 047
  3. FLOMAX [Suspect]
     Indication: PROSTATE EXAMINATION ABNORMAL
     Dosage: 0.4 MG DAILY 047

REACTIONS (1)
  - DIZZINESS [None]
